FAERS Safety Report 9431066 (Version 1)
Quarter: 2013Q3

REPORT INFORMATION
  Report Type: Report from Study
  Country: US (occurrence: US)
  Receive Date: 20130730
  Receipt Date: 20130730
  Transmission Date: 20140515
  Serious: Yes (Life-Threatening, Hospitalization)
  Sender: FDA-Public Use
  Company Number: US-CELGENEUS-163-21880-13024049

PATIENT
  Age: 66 Year
  Sex: Male
  Weight: 96.6 kg

DRUGS (22)
  1. REVLIMID [Suspect]
     Indication: MANTLE CELL LYMPHOMA
     Route: 048
     Dates: start: 20130212, end: 20130226
  2. REVLIMID [Suspect]
     Route: 048
     Dates: start: 20130307
  3. REVLIMID [Suspect]
     Route: 048
     Dates: start: 20130409, end: 20130421
  4. RITUXIMAB [Suspect]
     Indication: MANTLE CELL LYMPHOMA
     Route: 065
     Dates: start: 20130212
  5. RITUXIMAB [Suspect]
     Route: 065
     Dates: start: 20130219, end: 20130312
  6. WARFARIN SODIUM [Concomitant]
     Indication: THROMBOSIS PROPHYLAXIS
     Dosage: 5MG-4MG
     Route: 048
  7. ATENOLOL [Concomitant]
     Indication: HYPERTENSION
     Dosage: 50 MILLIGRAM
     Route: 048
  8. ASPIRIN [Concomitant]
     Indication: THROMBOSIS PROPHYLAXIS
     Dosage: 81 MILLIGRAM
     Route: 048
     Dates: start: 20130205
  9. ROSUVASTATIN CALCIUM [Concomitant]
     Indication: HYPERLIPIDAEMIA
     Dosage: 5 MILLIGRAM
     Route: 048
  10. CHOLECALCIFEROL [Concomitant]
     Indication: VITAMIN SUPPLEMENTATION
     Dosage: 1000 UNITS
     Route: 048
     Dates: start: 20130205
  11. INSULIN [Concomitant]
     Indication: DIABETES MELLITUS
     Dosage: 75-25
     Route: 050
     Dates: start: 20130312
  12. LISINOPRIL [Concomitant]
     Indication: HYPERTENSION
     Dosage: 10 MILLIGRAM
     Route: 048
     Dates: start: 20130312
  13. METFORMIN HCL [Concomitant]
     Indication: DIABETES MELLITUS
     Dosage: 2000 MILLIGRAM
     Route: 048
  14. PANTOPRAZOLE SODIUM [Concomitant]
     Indication: GASTROOESOPHAGEAL REFLUX DISEASE
     Dosage: 40 MILLIGRAM
     Route: 048
     Dates: start: 20130205
  15. SOLU-CORTEF [Concomitant]
     Indication: INFUSION RELATED REACTION
     Route: 041
     Dates: start: 20130212, end: 20130212
  16. DEMEROL [Concomitant]
     Indication: INFUSION RELATED REACTION
     Route: 041
     Dates: start: 20130212, end: 20130212
  17. LASIX [Concomitant]
     Indication: CARDIAC FAILURE CONGESTIVE
     Route: 041
     Dates: start: 20130223, end: 20130301
  18. LASIX [Concomitant]
     Indication: OEDEMA
     Route: 041
     Dates: start: 20130421, end: 20130426
  19. HYDRALAZINE HCL [Concomitant]
     Indication: HYPERTENSION
     Dosage: 37.5 MILLIGRAM
     Route: 048
     Dates: start: 20130223
  20. INSULIN ASPART [Concomitant]
     Indication: DIABETES MELLITUS
     Dosage: 10 UNITS
     Route: 058
     Dates: start: 20130312
  21. INSULIN LISPOR PROT AND LISPRO [Concomitant]
     Indication: DIABETES MELLITUS
     Dosage: 75 UNITS
     Route: 058
     Dates: start: 20130312
  22. ATORVASTATIN [Concomitant]
     Indication: PRODUCT USED FOR UNKNOWN INDICATION
     Dosage: 10 MILLIGRAM
     Route: 065

REACTIONS (1)
  - Tumour flare [Recovered/Resolved]
